FAERS Safety Report 7520962-3 (Version None)
Quarter: 2011Q2

REPORT INFORMATION
  Report Type: 
  Country: None (occurrence: None)
  Receive Date: 20110603
  Receipt Date: 20100709
  Transmission Date: 20111010
  Serious: Yes (Hospitalization)
  Sender: FDA-Public Use
  Company Number: US-BAYER-201030075NA

PATIENT
  Age: 18 Year
  Sex: Female
  Weight: 86.168 kg

DRUGS (8)
  1. TRETINOIN [Concomitant]
     Route: 061
  2. NASONEX [Concomitant]
     Dosage: 50 MCG/ML, UNK
     Route: 045
  3. HYDROCODONE BITARTRATE [Concomitant]
     Dosage: 500 MG, UNK
     Route: 048
  4. YASMIN [Suspect]
     Indication: ACNE
     Dosage: UNK
     Dates: start: 20040101, end: 20090101
  5. YASMIN [Suspect]
     Indication: PREMENSTRUAL SYNDROME
  6. DOXYCLINE [Concomitant]
  7. ISOTRETINOIN [Concomitant]
     Indication: ACNE
     Dosage: 80 MG, ONCE
     Route: 048
     Dates: start: 20040101, end: 20090101
  8. NSAID'S [Concomitant]

REACTIONS (4)
  - BILIARY DYSKINESIA [None]
  - PAIN [None]
  - INJURY [None]
  - BILIARY COLIC [None]
